FAERS Safety Report 5261806-2 (Version None)
Quarter: 2007Q1

REPORT INFORMATION
  Report Type: 
  Country: None (occurrence: None)
  Receive Date: 20070310
  Receipt Date: 20070228
  Transmission Date: 20070707
  Serious: Yes (Disabling)
  Sender: FDA-Public Use
  Company Number: 2006UW25250

PATIENT
  Sex: Male
  Weight: 150 kg

DRUGS (3)
  1. SEROQUEL [Suspect]
     Route: 048
     Dates: end: 20060101
  2. ZYPREXA [Concomitant]
  3. PROZAC [Concomitant]

REACTIONS (4)
  - CARDIAC DISORDER [None]
  - DIABETES MELLITUS [None]
  - RENAL FAILURE [None]
  - TARDIVE DYSKINESIA [None]
